FAERS Safety Report 25118635 (Version 2)
Quarter: 2025Q2

REPORT INFORMATION
  Report Type: Spontaneous
  Country: JP (occurrence: JP)
  Receive Date: 20250325
  Receipt Date: 20250605
  Transmission Date: 20250717
  Serious: Yes (Death)
  Sender: PFIZER
  Company Number: JP-PFIZER INC-PV202500035614

PATIENT
  Age: 88 Year
  Sex: Female
  Weight: 41 kg

DRUGS (10)
  1. VYNDAQEL [Suspect]
     Active Substance: TAFAMIDIS MEGLUMINE
     Indication: Cardiac amyloidosis
     Route: 048
     Dates: start: 20220217, end: 20221111
  2. EDOXABAN TOSYLATE [Suspect]
     Active Substance: EDOXABAN TOSYLATE
  3. VONOPRAZAN FUMARATE [Concomitant]
     Active Substance: VONOPRAZAN FUMARATE
  4. TRICHLORMETHIAZIDE [Concomitant]
     Active Substance: TRICHLORMETHIAZIDE
  5. SODIUM FERROUS CITRATE [Concomitant]
     Active Substance: SODIUM FERROUS CITRATE
  6. AMIODARONE [Concomitant]
     Active Substance: AMIODARONE
  7. AZOSEMIDE [Concomitant]
     Active Substance: AZOSEMIDE
  8. SAMSCA [Concomitant]
     Active Substance: TOLVAPTAN
  9. BISOPROLOL [Concomitant]
     Active Substance: BISOPROLOL
  10. FEBUXOSTAT [Concomitant]
     Active Substance: FEBUXOSTAT

REACTIONS (2)
  - Cerebral haemorrhage [Fatal]
  - Haemorrhagic infarction [Fatal]

NARRATIVE: CASE EVENT DATE: 20221112
